FAERS Safety Report 9774697 (Version 1)
Quarter: 2013Q4

REPORT INFORMATION
  Report Type: Report from Study
  Country: NL (occurrence: NL)
  Receive Date: 20131220
  Receipt Date: 20131220
  Transmission Date: 20140711
  Serious: Yes (Hospitalization)
  Sender: FDA-Public Use
  Company Number: NL-ABBVIE-13P-114-1181361-00

PATIENT
  Sex: Male

DRUGS (2)
  1. LUCRIN 30 MG [Suspect]
     Indication: PROSTATE CANCER
     Route: 058
     Dates: start: 20130521
  2. LUCRIN 11.25 MG [Suspect]
     Indication: PROSTATE CANCER
     Route: 058
     Dates: start: 20110202, end: 20130521

REACTIONS (1)
  - Surgery [Unknown]
